FAERS Safety Report 25533423 (Version 1)
Quarter: 2025Q3

REPORT INFORMATION
  Report Type: Spontaneous
  Country: EU (occurrence: EU)
  Receive Date: 20250709
  Receipt Date: 20250709
  Transmission Date: 20251020
  Serious: Yes (Death)
  Sender: TEVA
  Company Number: None

PATIENT
  Age: 61 Year
  Sex: Female

DRUGS (2)
  1. MIRTAZAPINE [Suspect]
     Active Substance: MIRTAZAPINE
     Indication: Depression
     Dosage: FROM APRIL 10, 2025, TO APRIL 23, 2025, HALF A TABLET PER DAY; FROM APRIL 23, 2025, TO MAY 2, 202...
     Route: 048
     Dates: start: 20250410, end: 20250502
  2. VENLAFAXINE [Suspect]
     Active Substance: VENLAFAXINE HYDROCHLORIDE
     Indication: Depression
     Route: 048
     Dates: start: 20250305, end: 20250423

REACTIONS (5)
  - Feeling guilty [Fatal]
  - Agitation [Fatal]
  - Drug ineffective [Fatal]
  - Mental impairment [Fatal]
  - Completed suicide [Fatal]

NARRATIVE: CASE EVENT DATE: 20250305
